FAERS Safety Report 15296898 (Version 3)
Quarter: 2018Q4

REPORT INFORMATION
  Report Type: Spontaneous
  Country: US (occurrence: US)
  Receive Date: 20180820
  Receipt Date: 20181025
  Transmission Date: 20190204
  Serious: No
  Sender: FDA-Public Use
  Company Number: US-PFIZER INC-2018332864

PATIENT
  Age: 30 Year
  Sex: Female

DRUGS (1)
  1. XELJANZ XR [Suspect]
     Active Substance: TOFACITINIB CITRATE
     Dosage: 11 MG, UNK
     Dates: start: 201807

REACTIONS (7)
  - Dizziness [Recovering/Resolving]
  - Joint swelling [Not Recovered/Not Resolved]
  - Herpes zoster [Unknown]
  - Product dose omission [Unknown]
  - Drug ineffective [Unknown]
  - Amnesia [Not Recovered/Not Resolved]
  - Peripheral swelling [Not Recovered/Not Resolved]

NARRATIVE: CASE EVENT DATE: 2018
